FAERS Safety Report 8561316-0 (Version None)
Quarter: 2012Q3

REPORT INFORMATION
  Report Type: 
  Country: None (occurrence: None)
  Receive Date: 20120802
  Receipt Date: 20120730
  Transmission Date: 20120928
  Serious: Yes (Death, Other)
  Sender: FDA-Public Use
  Company Number: BR-009507513-1208BRA000233

PATIENT

DRUGS (4)
  1. RIBAVIRIN [Suspect]
     Indication: HEPATITIS C
     Dosage: UNK
     Route: 064
  2. PEGASYS [Concomitant]
     Indication: HEPATITIS C
     Dosage: UNK
     Route: 064
  3. LISADOR [Concomitant]
     Route: 064
  4. DRAMIN [Concomitant]
     Route: 064

REACTIONS (3)
  - CARDIAC OPERATION [None]
  - HEART DISEASE CONGENITAL [None]
  - FOETAL EXPOSURE DURING PREGNANCY [None]
